FAERS Safety Report 8180056-3 (Version None)
Quarter: 2012Q1

REPORT INFORMATION
  Report Type: 
  Country: None (occurrence: None)
  Receive Date: 20120302
  Receipt Date: 20120302
  Transmission Date: 20120608
  Serious: Yes (Life-Threatening)
  Sender: FDA-Public Use
  Company Number: None

PATIENT
  Sex: Male
  Weight: 87.089 kg

DRUGS (6)
  1. TRAZODONE HCL [Concomitant]
     Route: 048
  2. ALLEGRA [Concomitant]
     Route: 048
  3. METFORMIN HCL [Concomitant]
     Route: 048
  4. LISINOPRIL [Concomitant]
  5. SERTRALINE HYDROCHLORIDE [Concomitant]
     Route: 048
  6. PRADAXA [Suspect]
     Indication: ATRIAL FIBRILLATION
     Dosage: 1 TAB
     Route: 048
     Dates: start: 20110616, end: 20110712

REACTIONS (7)
  - EATING DISORDER [None]
  - HAEMARTHROSIS [None]
  - HAEMATOCHEZIA [None]
  - DECREASED APPETITE [None]
  - DIARRHOEA [None]
  - DEEP VEIN THROMBOSIS [None]
  - DRUG DOSE OMISSION [None]
